FAERS Safety Report 16046764 (Version 17)
Quarter: 2022Q3

REPORT INFORMATION
  Report Type: Spontaneous
  Country: US (occurrence: US)
  Receive Date: 20190307
  Receipt Date: 20220912
  Transmission Date: 20221027
  Serious: Yes (Other)
  Sender: FDA-Public Use
  Company Number: US-PFIZER INC-2019088356

PATIENT
  Age: 54 Year
  Sex: Female
  Weight: 69.85 kg

DRUGS (4)
  1. PREMARIN [Suspect]
     Active Substance: ESTROGENS, CONJUGATED
     Indication: Endometriosis
     Dosage: 1.25 MG, ONCE A DAY
     Route: 048
  2. PREMARIN [Suspect]
     Active Substance: ESTROGENS, CONJUGATED
     Indication: Ovarian cyst
     Dosage: 1.25 MG, ONCE A DAY
     Route: 048
  3. PREMARIN [Suspect]
     Active Substance: ESTROGENS, CONJUGATED
     Indication: Haemorrhage
     Dosage: 1.25 MG, ONCE A DAY
     Route: 048
  4. INSULIN NOS [Concomitant]
     Active Substance: INSULIN NOS
     Dosage: UNK

REACTIONS (11)
  - Haemorrhage [Unknown]
  - Anxiety [Unknown]
  - Blood glucose increased [Unknown]
  - Blood glucose fluctuation [Unknown]
  - Visual impairment [Unknown]
  - Feeling abnormal [Not Recovered/Not Resolved]
  - COVID-19 [Unknown]
  - Blood glucose decreased [Unknown]
  - Thinking abnormal [Unknown]
  - Product dose omission issue [Unknown]
  - Off label use [Unknown]

NARRATIVE: CASE EVENT DATE: 20220526
